FAERS Safety Report 6309687-X (Version None)
Quarter: 2009Q3

REPORT INFORMATION
  Report Type: 
  Country: None (occurrence: None)
  Receive Date: 20090814
  Receipt Date: 20090811
  Transmission Date: 20100115
  Serious: Yes (Death, Hospitalization)
  Sender: FDA-Public Use
  Company Number: PHHY2009CA24250

PATIENT
  Sex: Female

DRUGS (3)
  1. SANDOSTATIN LAR [Suspect]
     Indication: METASTATIC CARCINOID TUMOUR
     Dosage: 60 MG, TIW
     Route: 030
     Dates: start: 20090521, end: 20090630
  2. INTERFERON [Concomitant]
     Dosage: 3 X WEEKLY
     Route: 058
  3. MORPHINE [Concomitant]
     Indication: PAIN

REACTIONS (3)
  - INTESTINAL OBSTRUCTION [None]
  - NAUSEA [None]
  - POSTOPERATIVE WOUND INFECTION [None]
